FAERS Safety Report 4892044-0 (Version None)
Quarter: 2006Q1

REPORT INFORMATION
  Report Type: 
  Country: None (occurrence: None)
  Receive Date: 20060126
  Receipt Date: 20031209
  Transmission Date: 20060701
  Serious: Yes (Other)
  Sender: FDA-Public Use
  Company Number: PHEH2003US11319

PATIENT
  Age: 51 Year
  Sex: Male

DRUGS (14)
  1. AREDIA [Suspect]
     Dosage: 90MG OVER 2-4 HRS
     Dates: start: 19950505, end: 19991213
  2. ZOMETA [Suspect]
     Dosage: UNK/UNK
  3. BACTRIM DS [Concomitant]
     Dosage: 1 TABLET/BID
  4. DECADRON [Concomitant]
     Dosage: 20 MG, QW
  5. PRILOSEC [Concomitant]
  6. MYCELEX [Concomitant]
  7. THALIDOMIDE [Concomitant]
  8. MELPHALAN [Concomitant]
  9. CHEMOTHERAPEUTICS,OTHER [Concomitant]
  10. AMBIEN [Concomitant]
     Dosage: 10 MG, QHS
  11. AZITHROMYCIN [Concomitant]
  12. PENICILLIN G [Concomitant]
  13. OXYCODONE [Concomitant]
  14. PERCOCET [Concomitant]
     Dosage: 2 TABLETS/ Q4HRS

REACTIONS (11)
  - ABSCESS JAW [None]
  - ACTINOMYCOSIS [None]
  - DENTAL TREATMENT [None]
  - EXOSTOSIS [None]
  - OSTEOMYELITIS [None]
  - OSTEONECROSIS [None]
  - PAIN IN JAW [None]
  - SEQUESTRECTOMY [None]
  - TOOTH ABSCESS [None]
  - TOOTH EXTRACTION [None]
  - WOUND DEBRIDEMENT [None]
